FAERS Safety Report 25347471 (Version 1)
Quarter: 2025Q2

REPORT INFORMATION
  Report Type: Spontaneous
  Country: US (occurrence: None)
  Receive Date: 20250521
  Receipt Date: 20250521
  Transmission Date: 20250717
  Serious: Yes (Other)
  Sender: FDA-CTU
  Company Number: None

PATIENT
  Age: 80 Year

DRUGS (15)
  1. MIEBO [Suspect]
     Active Substance: PERFLUOROHEXYLOCTANE
     Dosage: FREQUENCY : 4 TIMES A DAY;?
     Route: 047
     Dates: start: 20250520
  2. XDEMVY [Suspect]
     Active Substance: LOTILANER
  3. YUVAFEM [Concomitant]
     Active Substance: ESTRADIOL HEMIHYDRATE
  4. ERYTHROMYCIN 0.5% EYE OINTMENT, [Concomitant]
  5. FLOVENT HFA 220 MCG INHALER [Concomitant]
  6. PROAIR HFA [Concomitant]
     Active Substance: ALBUTEROL SULFATE
  7. BACLOFEN 10 MG TABLET, [Concomitant]
  8. PYRIDIUM 100 MG TABLET [Concomitant]
  9. TRAMADOL HYDROCHLORIDE [Concomitant]
     Active Substance: TRAMADOL HYDROCHLORIDE
  10. BENTYL 10 MG CAPSULE [Concomitant]
  11. AMBIEN CR 12.5 MG TABLET [Concomitant]
  12. KLONOPIN 0.5 MG TABLET [Concomitant]
  13. PREVACID 15 MG CAPSULE DR [Concomitant]
  14. ELIQUIS [Concomitant]
     Active Substance: APIXABAN
  15. FLUTICASONE PROPIONATE [Concomitant]
     Active Substance: FLUTICASONE PROPIONATE

REACTIONS (10)
  - Dyspnoea [None]
  - Wheezing [None]
  - Lymphadenopathy [None]
  - Palpitations [None]
  - Lacrimation increased [None]
  - Abdominal pain upper [None]
  - Illness [None]
  - Nasal congestion [None]
  - Dizziness [None]
  - Hyperhidrosis [None]

NARRATIVE: CASE EVENT DATE: 20250521
